FAERS Safety Report 14914815 (Version 2)
Quarter: 2018Q2

REPORT INFORMATION
  Report Type: Spontaneous
  Country: GR (occurrence: GR)
  Receive Date: 20180518
  Receipt Date: 20180522
  Transmission Date: 20180711
  Serious: Yes (Life-Threatening)
  Sender: FDA-Public Use
  Company Number: GR-ASTRAZENECA-2018SE62468

PATIENT
  Age: 46 Year
  Sex: Female
  Weight: 78 kg

DRUGS (10)
  1. ARIPIPRAZOLE. [Suspect]
     Active Substance: ARIPIPRAZOLE
     Indication: EMOTIONAL DISORDER
     Route: 048
     Dates: start: 20171120
  2. QUETIAPINE FUMARATE. [Suspect]
     Active Substance: QUETIAPINE FUMARATE
     Indication: STRESS
     Route: 048
     Dates: start: 20180101, end: 20180301
  3. QUETIAPINE FUMARATE. [Suspect]
     Active Substance: QUETIAPINE FUMARATE
     Indication: EMOTIONAL DISORDER
     Route: 048
     Dates: start: 20180101, end: 20180301
  4. ARIPIPRAZOLE. [Suspect]
     Active Substance: ARIPIPRAZOLE
     Indication: STRESS
     Route: 048
     Dates: start: 20171120
  5. OLANZAPINE. [Suspect]
     Active Substance: OLANZAPINE
     Indication: EMOTIONAL DISORDER
     Route: 030
     Dates: start: 20100601
  6. OLANZAPINE. [Suspect]
     Active Substance: OLANZAPINE
     Indication: STRESS
     Route: 030
     Dates: start: 20100601
  7. ABILIFY MAINTENA [Suspect]
     Active Substance: ARIPIPRAZOLE
     Indication: EMOTIONAL DISORDER
     Route: 030
     Dates: start: 20171120
  8. ABILIFY MAINTENA [Suspect]
     Active Substance: ARIPIPRAZOLE
     Indication: STRESS
     Route: 030
     Dates: start: 20171120
  9. AKINETON [Concomitant]
     Active Substance: BIPERIDEN HYDROCHLORIDE
     Indication: EMOTIONAL DISORDER
     Route: 048
     Dates: start: 20180101, end: 20180201
  10. AKINETON [Concomitant]
     Active Substance: BIPERIDEN HYDROCHLORIDE
     Indication: STRESS
     Route: 048
     Dates: start: 20180101, end: 20180201

REACTIONS (5)
  - Stress [Not Recovered/Not Resolved]
  - Somnolence [Not Recovered/Not Resolved]
  - Musculoskeletal stiffness [Not Recovered/Not Resolved]
  - Amnesia [Not Recovered/Not Resolved]
  - Weight increased [Not Recovered/Not Resolved]
